FAERS Safety Report 15893574 (Version 1)
Quarter: 2019Q1

REPORT INFORMATION
  Report Type: Spontaneous
  Country: US (occurrence: US)
  Receive Date: 20190131
  Receipt Date: 20190131
  Transmission Date: 20190417
  Serious: No
  Sender: FDA-Public Use
  Company Number: US-AMGEN-USASP2019011689

PATIENT
  Sex: Male

DRUGS (3)
  1. NPLATE [Suspect]
     Active Substance: ROMIPLOSTIM
     Indication: IMMUNE THROMBOCYTOPENIC PURPURA
     Dosage: 3 MUG/KG, QWK
     Route: 065
  2. NPLATE [Suspect]
     Active Substance: ROMIPLOSTIM
     Dosage: 4 MUG/KG, UNK
     Route: 065
  3. IMMUNOGLOBULIN IGG [Concomitant]
     Dosage: UNK UNK, QMO
     Route: 065

REACTIONS (5)
  - Nasal ulcer [Unknown]
  - Epistaxis [Unknown]
  - Platelet count decreased [Unknown]
  - Petechiae [Unknown]
  - Stomatitis [Unknown]
